FAERS Safety Report 7560761-X (Version None)
Quarter: 2011Q2

REPORT INFORMATION
  Report Type: 
  Country: None (occurrence: None)
  Receive Date: 20110621
  Receipt Date: 20101018
  Transmission Date: 20111010
  Serious: No
  Sender: FDA-Public Use
  Company Number: US-ASTRAZENECA-2010SE17193

PATIENT
  Sex: Female

DRUGS (2)
  1. TOPROL-XL [Suspect]
     Route: 048
  2. ATACAND [Suspect]
     Route: 048

REACTIONS (3)
  - FALL [None]
  - HEAD INJURY [None]
  - MALAISE [None]
